FAERS Safety Report 12648255 (Version 1)
Quarter: 2016Q3

REPORT INFORMATION
  Report Type: Report from Study
  Country: US (occurrence: US)
  Receive Date: 20160812
  Receipt Date: 20160812
  Transmission Date: 20161109
  Serious: Yes (Other)
  Sender: FDA-Public Use
  Company Number: US-ASTELLAS-2010002858

PATIENT
  Age: 47 Year
  Sex: Male

DRUGS (4)
  1. ERLOTINIB [Suspect]
     Active Substance: ERLOTINIB
     Indication: NEOPLASM
  2. ERLOTINIB [Suspect]
     Active Substance: ERLOTINIB
     Indication: EWING^S SARCOMA
     Route: 048
     Dates: start: 20100629
  3. VISMODEGIB [Suspect]
     Active Substance: VISMODEGIB
     Indication: EWING^S SARCOMA
     Route: 048
     Dates: start: 20100629
  4. VISMODEGIB [Suspect]
     Active Substance: VISMODEGIB
     Indication: NEOPLASM

REACTIONS (4)
  - White blood cell count decreased [Recovered/Resolved]
  - Platelet count decreased [Recovered/Resolved]
  - Neutrophil count decreased [Recovered/Resolved]
  - Pruritus [Recovered/Resolved]

NARRATIVE: CASE EVENT DATE: 20100713
